FAERS Safety Report 23970652 (Version 1)
Quarter: 2024Q2

REPORT INFORMATION
  Report Type: Spontaneous
  Country: CN (occurrence: CN)
  Receive Date: 20240613
  Receipt Date: 20240613
  Transmission Date: 20240716
  Serious: Yes (Other)
  Sender: FDA-Public Use
  Company Number: None

PATIENT
  Age: 54 Year
  Sex: Female
  Weight: 77 kg

DRUGS (4)
  1. CYCLOPHOSPHAMIDE [Suspect]
     Active Substance: CYCLOPHOSPHAMIDE
     Indication: Breast cancer female
     Dosage: 1.1 G, ONCE A DAY, DILUTED WITH 100 ML OF 0.9% SODIUM CHLORIDE
     Route: 041
     Dates: start: 20240507, end: 20240507
  2. SODIUM CHLORIDE [Suspect]
     Active Substance: SODIUM CHLORIDE
     Indication: Medication dilution
     Dosage: 100 ML, ONCE A DAY, USED TO DILUTE 1.1 G OF CYCLOPHOSPHAMIDE, STRENGTH: 0.9%, DOSAGE FORM: INJECTION
     Route: 041
     Dates: start: 20240507, end: 20240507
  3. SODIUM CHLORIDE [Suspect]
     Active Substance: SODIUM CHLORIDE
     Dosage: 250 ML, ONCE A DAY, USED TO DILUTE 150 MG OF EPIRUBICIN HYDROCHLORIDE, STRENGTH: 0.9%, DOSAGE FORM:
     Route: 041
     Dates: start: 20240507, end: 20240507
  4. EPIRUBICIN HYDROCHLORIDE [Suspect]
     Active Substance: EPIRUBICIN HYDROCHLORIDE
     Indication: Breast cancer female
     Dosage: 150 MG, ONCE A DAY, DILUTED WITH 250 ML OF 0.9 % SODIUM CHLORIDE
     Route: 041
     Dates: start: 20240507, end: 20240507

REACTIONS (3)
  - Myelosuppression [Recovering/Resolving]
  - White blood cell count decreased [Unknown]
  - Granulocyte count decreased [Unknown]

NARRATIVE: CASE EVENT DATE: 20240521
